FAERS Safety Report 7292353-4 (Version None)
Quarter: 2011Q1

REPORT INFORMATION
  Report Type: 
  Country: None (occurrence: None)
  Receive Date: 20110202
  Receipt Date: 20110126
  Transmission Date: 20110831
  Serious: Yes (Hospitalization)
  Sender: FDA-Public Use
  Company Number: 2009SP021931

PATIENT
  Age: 24 Year
  Sex: Female
  Weight: 65.7716 kg

DRUGS (7)
  1. NEXIUM [Concomitant]
  2. BACTRIM DS [Concomitant]
  3. NUVARING [Suspect]
     Indication: CONTRACEPTION
     Dosage: ; VAG
     Route: 067
     Dates: start: 20070212, end: 20070901
  4. HYDROCODONE [Concomitant]
  5. PLAN B [Concomitant]
  6. DOXYCYCLINE [Concomitant]
  7. ACCUTANE [Concomitant]

REACTIONS (23)
  - BACK PAIN [None]
  - COELIAC DISEASE [None]
  - ACNE [None]
  - CHEST PAIN [None]
  - EXCORIATION [None]
  - CERVICAL DYSPLASIA [None]
  - GASTROINTESTINAL EROSION [None]
  - VAGINITIS BACTERIAL [None]
  - SINUSITIS [None]
  - IRON DEFICIENCY ANAEMIA [None]
  - HILAR LYMPHADENOPATHY [None]
  - PULMONARY INFARCTION [None]
  - INTERNATIONAL NORMALISED RATIO INCREASED [None]
  - PULMONARY EMBOLISM [None]
  - MENORRHAGIA [None]
  - UTERINE MALPOSITION [None]
  - ROAD TRAFFIC ACCIDENT [None]
  - UTERINE ENLARGEMENT [None]
  - PROTEIN S DECREASED [None]
  - DYSMENORRHOEA [None]
  - HISTOPLASMOSIS [None]
  - SARCOIDOSIS [None]
  - LEUKOPENIA [None]
